FAERS Safety Report 18419953 (Version 1)
Quarter: 2020Q4

REPORT INFORMATION
  Report Type: Spontaneous
  Country: CN (occurrence: CN)
  Receive Date: 20201023
  Receipt Date: 20201023
  Transmission Date: 20210114
  Serious: Yes (Hospitalization, Other)
  Sender: FDA-Public Use
  Company Number: CN-GLAXOSMITHKLINE-CN2020APC207422

PATIENT
  Age: 73 Year
  Sex: Female
  Weight: 64 kg

DRUGS (2)
  1. CEFUROXIME SODIUM. [Suspect]
     Active Substance: CEFUROXIME SODIUM
     Indication: UPPER RESPIRATORY TRACT INFECTION
     Dosage: 1.5 G, QD
     Route: 042
     Dates: start: 20200921, end: 20200921
  2. SODIUM CHLORIDE INJECTION [Concomitant]
     Active Substance: SODIUM CHLORIDE
     Indication: UPPER RESPIRATORY TRACT INFECTION
     Dosage: 250 ML, QD
     Route: 042
     Dates: start: 20200921, end: 20200921

REACTIONS (11)
  - Chest discomfort [Recovering/Resolving]
  - Blood pressure decreased [Recovering/Resolving]
  - Condition aggravated [Recovering/Resolving]
  - Anaphylactic shock [Recovering/Resolving]
  - Nausea [Recovering/Resolving]
  - Confusional state [Recovering/Resolving]
  - Urinary incontinence [Recovering/Resolving]
  - Heart rate increased [Recovering/Resolving]
  - Muscle twitching [Recovering/Resolving]
  - Loss of consciousness [Unknown]
  - Pallor [Recovering/Resolving]

NARRATIVE: CASE EVENT DATE: 20200921
